FAERS Safety Report 5931426-2 (Version None)
Quarter: 2008Q4

REPORT INFORMATION
  Report Type: 
  Country: None (occurrence: None)
  Receive Date: 20081027
  Receipt Date: 20081022
  Transmission Date: 20090506
  Serious: Yes (Hospitalization)
  Sender: FDA-Public Use
  Company Number: FR-AVENTIS-200815712EU

PATIENT
  Age: 69 Year
  Sex: Male

DRUGS (5)
  1. FLUDEX                             /00340101/ [Suspect]
     Route: 048
     Dates: end: 20080601
  2. APROVEL [Suspect]
     Dosage: DOSE: UNK
     Route: 048
     Dates: end: 20080507
  3. DILTIAZEM HCL [Concomitant]
     Dates: end: 20080507
  4. ZOPICLONE [Concomitant]
  5. LEVOTHYROX [Concomitant]

REACTIONS (2)
  - DERMATITIS EXFOLIATIVE [None]
  - PHOTOSENSITIVITY REACTION [None]
